FAERS Safety Report 6974678-2 (Version None)
Quarter: 2010Q3

REPORT INFORMATION
  Report Type: 
  Country: None (occurrence: None)
  Receive Date: 20100909
  Receipt Date: 20090121
  Transmission Date: 20110219
  Serious: No
  Sender: FDA-Public Use
  Company Number: US-WYE-H07126108

PATIENT
  Age: 25 Year
  Sex: Female
  Weight: 90.8 kg

DRUGS (1)
  1. PRISTIQ [Suspect]
     Indication: MAJOR DEPRESSION
     Route: 048
     Dates: start: 20081028, end: 20081127

REACTIONS (2)
  - RASH [None]
  - SKIN IRRITATION [None]
